FAERS Safety Report 25837462 (Version 1)
Quarter: 2025Q3

REPORT INFORMATION
  Report Type: Spontaneous
  Country: US (occurrence: None)
  Receive Date: 20250923
  Receipt Date: 20250923
  Transmission Date: 20251020
  Serious: Yes (Disabling)
  Sender: FDA-CTU
  Company Number: None

PATIENT
  Age: 53 Year
  Sex: Female
  Weight: 75.15 kg

DRUGS (4)
  1. EZETIMIBE [Suspect]
     Active Substance: EZETIMIBE
     Indication: Type IIa hyperlipidaemia
     Dosage: OTHER QUANTITY : 1 TABLET(S);?FREQUENCY : DAILY;?
     Route: 048
  2. PANTOPRAZOLE [Suspect]
     Active Substance: PANTOPRAZOLE
     Dosage: OTHER QUANTITY : 1 CAPSULE(S);?FREQUENCY : DAILY;?
     Route: 048
  3. VITAMIN D3 [Concomitant]
     Active Substance: CHOLECALCIFEROL
  4. CALCIUM [Concomitant]
     Active Substance: CALCIUM

REACTIONS (13)
  - Dyspnoea [None]
  - Pain in extremity [None]
  - Pain in extremity [None]
  - Abdominal pain [None]
  - Nausea [None]
  - Odynophagia [None]
  - Micturition urgency [None]
  - Urinary retention [None]
  - Dizziness [None]
  - Visual impairment [None]
  - Adverse drug reaction [None]
  - Mobility decreased [None]
  - Anxiety [None]

NARRATIVE: CASE EVENT DATE: 20050101
